FAERS Safety Report 7152525-6 (Version None)
Quarter: 2010Q4

REPORT INFORMATION
  Report Type: 
  Country: None (occurrence: None)
  Receive Date: 20101213
  Receipt Date: 20101202
  Transmission Date: 20110411
  Serious: Yes (Other)
  Sender: FDA-Public Use
  Company Number: US-JNJFOC-20101202276

PATIENT
  Age: 67 Year
  Sex: Male

DRUGS (12)
  1. LEVAQUIN [Suspect]
     Indication: UPPER RESPIRATORY TRACT INFECTION
     Route: 065
  2. SPORANOX [Suspect]
     Indication: PRODUCT USED FOR UNKNOWN INDICATION
     Route: 065
  3. STERAPRED [Suspect]
     Indication: PRODUCT USED FOR UNKNOWN INDICATION
     Route: 065
  4. PROGRAF [Concomitant]
     Route: 065
  5. PROGRAF [Concomitant]
     Route: 065
  6. RHEUMATREX [Concomitant]
     Route: 065
  7. CELLCEPT [Concomitant]
     Route: 065
  8. ZOVIRAX [Concomitant]
     Route: 065
  9. BACTRIM DS [Concomitant]
     Route: 065
  10. FOSAMAX [Concomitant]
     Route: 065
  11. MIACALCIN [Concomitant]
     Route: 065
  12. COMBIVENT [Concomitant]
     Route: 065

REACTIONS (4)
  - NAUSEA [None]
  - PAIN IN EXTREMITY [None]
  - TENDON RUPTURE [None]
  - TENDONITIS [None]
